FAERS Safety Report 25169226 (Version 3)
Quarter: 2025Q2

REPORT INFORMATION
  Report Type: Spontaneous
  Country: US (occurrence: US)
  Receive Date: 20250407
  Receipt Date: 20250423
  Transmission Date: 20250717
  Serious: No
  Sender: AMGEN
  Company Number: US-AMGEN-USASP2025062835

PATIENT
  Age: 78 Year
  Sex: Female
  Weight: 73.469 kg

DRUGS (1)
  1. NEULASTA [Suspect]
     Active Substance: PEGFILGRASTIM
     Indication: Product used for unknown indication
     Route: 065

REACTIONS (2)
  - Unintentional medical device removal [Unknown]
  - Product preparation error [Unknown]

NARRATIVE: CASE EVENT DATE: 20250327
